FAERS Safety Report 7378744-1 (Version None)
Quarter: 2011Q1

REPORT INFORMATION
  Report Type: 
  Country: None (occurrence: None)
  Receive Date: 20110328
  Receipt Date: 20110323
  Transmission Date: 20110831
  Serious: Yes (Other)
  Sender: FDA-Public Use
  Company Number: US-ABBOTT-11P-163-0713965-00

PATIENT
  Age: 72 Year
  Sex: Male
  Weight: 81.72 kg

DRUGS (11)
  1. PRILOSEC [Concomitant]
     Indication: GASTRIC DISORDER
  2. SEVELAMER CARBONATE [Concomitant]
     Indication: PRODUCT USED FOR UNKNOWN INDICATION
  3. MIDODRINE HYDROCHLORIDE [Concomitant]
     Indication: HYPERTENSION
  4. ROBITUSSIN [Interacting]
     Indication: RESPIRATORY TRACT CONGESTION
     Dates: start: 20110308
  5. SERTRALINE HYDROCHLORIDE [Interacting]
     Indication: DEPRESSION
  6. PRILOSEC [Concomitant]
     Indication: ABDOMINAL DISCOMFORT
  7. PERCOCET [Interacting]
     Indication: PRODUCT USED FOR UNKNOWN INDICATION
  8. VICODIN [Suspect]
     Indication: PRODUCT USED FOR UNKNOWN INDICATION
  9. SERTRALINE HYDROCHLORIDE [Interacting]
     Indication: INSOMNIA
  10. MIDODRINE HYDROCHLORIDE [Concomitant]
  11. CO Q-10 [Concomitant]
     Indication: PRODUCT USED FOR UNKNOWN INDICATION

REACTIONS (5)
  - DRUG INTERACTION [None]
  - FATIGUE [None]
  - FEELING ABNORMAL [None]
  - SOMNOLENCE [None]
  - MOANING [None]
